FAERS Safety Report 5692910-2 (Version None)
Quarter: 2008Q2

REPORT INFORMATION
  Report Type: 
  Country: None (occurrence: None)
  Receive Date: 20080327
  Receipt Date: 20080123
  Transmission Date: 20081010
  Serious: Yes (Hospitalization)
  Sender: FDA-Public Use
  Company Number: A03200800259

PATIENT
  Age: 80 Year
  Sex: Female
  Weight: 49.8957 kg

DRUGS (6)
  1. AMBIEN CR [Suspect]
     Indication: RELAXATION THERAPY
     Dosage: ORAL
     Route: 048
     Dates: start: 20070927, end: 20071101
  2. AMBIEN CR [Suspect]
     Indication: SLEEP DISORDER
     Dosage: ORAL
     Route: 048
     Dates: start: 20070927, end: 20071101
  3. DETROL [Suspect]
     Indication: BLADDER DISORDER
     Dosage: ORAL
     Route: 048
     Dates: start: 20070901, end: 20070901
  4. MULTI-VITAMINS [Concomitant]
  5. ACETAMINOPHEN [Concomitant]
  6. CALCIUM CARBONATE [Concomitant]

REACTIONS (3)
  - DIZZINESS [None]
  - FALL [None]
  - LOSS OF CONSCIOUSNESS [None]
